FAERS Safety Report 5441559-5 (Version None)
Quarter: 2007Q3

REPORT INFORMATION
  Report Type: 
  Country: None (occurrence: None)
  Receive Date: 20070904
  Receipt Date: 20070823
  Transmission Date: 20080115
  Serious: No
  Sender: FDA-Public Use
  Company Number: NZ-ELI_LILLY_AND_COMPANY-NZ200708004907

PATIENT
  Age: 30 Year
  Sex: Female

DRUGS (2)
  1. ZYPREXA [Suspect]
     Indication: SCHIZOPHRENIA
     Dosage: 20 MG, UNKNOWN
     Dates: start: 20070801
  2. CHLORPROMAZINE [Concomitant]
     Dosage: UNK, UNKNOWN
     Dates: end: 20070801

REACTIONS (1)
  - WHITE BLOOD CELL COUNT INCREASED [None]
